FAERS Safety Report 10218521 (Version 1)
Quarter: 2014Q2

REPORT INFORMATION
  Report Type: Spontaneous
  Country: US (occurrence: US)
  Receive Date: 20140605
  Receipt Date: 20140605
  Transmission Date: 20141212
  Serious: Yes (Hospitalization)
  Sender: FDA-Public Use
  Company Number: US-TARO PHARMACEUTICALS U.S.A., INC-2014SUN01195

PATIENT
  Age: 62 Year
  Sex: Male

DRUGS (5)
  1. AMIODARONE [Suspect]
     Indication: ATRIAL FIBRILLATION
     Dosage: 200 MG, BID
     Route: 065
  2. ASPIRIN [Concomitant]
     Dosage: 325 MG, QD
  3. FUROSEMIDE [Concomitant]
     Dosage: 40 MG, BID
  4. LISINOPRIL [Concomitant]
     Dosage: 20 MG, QD
  5. METOPROLOL [Concomitant]
     Dosage: 50 MG, BID

REACTIONS (1)
  - Myxoedema coma [Recovered/Resolved]
